FAERS Safety Report 4445470-8 (Version None)
Quarter: 2004Q2

REPORT INFORMATION
  Report Type: 
  Country: None (occurrence: None)
  Receive Date: 20040428
  Receipt Date: 20030306
  Transmission Date: 20050107
  Serious: Yes (Hospitalization)
  Sender: FDA-Public Use
  Company Number: 200310023BBE

PATIENT
  Sex: Female

DRUGS (1)
  1. GAMIMUNE N 10% [Suspect]
     Dosage: 30 G, INTRAVENOUS
     Route: 042

REACTIONS (1)
  - PYREXIA [None]
